FAERS Safety Report 9290234 (Version 2)
Quarter: 2013Q2

REPORT INFORMATION
  Report Type: Report from Study
  Country: JP (occurrence: JP)
  Receive Date: 20130515
  Receipt Date: 20130614
  Transmission Date: 20140414
  Serious: Yes (Death, Other)
  Sender: FDA-Public Use
  Company Number: JP-ROCHE-1223297

PATIENT
  Age: 92 Year
  Sex: Female

DRUGS (1)
  1. METHOXY POLYETHYLENE GLYCOL-EPOETIN BETA [Suspect]
     Indication: NEPHROGENIC ANAEMIA
     Route: 058
     Dates: start: 20120831, end: 20120919

REACTIONS (3)
  - Cardiogenic shock [Fatal]
  - Acute myocardial infarction [Unknown]
  - Hypertension [Unknown]
